FAERS Safety Report 8473876-9 (Version None)
Quarter: 2012Q2

REPORT INFORMATION
  Report Type: 
  Country: None (occurrence: None)
  Receive Date: 20120628
  Receipt Date: 20120209
  Transmission Date: 20120825
  Serious: Yes (Other)
  Sender: FDA-Public Use
  Company Number: US-MYLANLABS-2012S1000615

PATIENT
  Age: 59 Year
  Sex: Female

DRUGS (7)
  1. CLOZAPINE [Suspect]
     Indication: SCHIZOPHRENIA
     Route: 048
     Dates: end: 20120103
  2. COGENTIN [Concomitant]
  3. DEPAKOTE [Concomitant]
     Dosage: USING DEPAKOTE, 500MG X 1 Q.AM. AND 500MG X 2 Q. HS.
  4. GLIPIZIDE [Concomitant]
  5. LISINOPRIL [Concomitant]
  6. ATIVAN [Concomitant]
  7. METOPROLOL TARTRATE [Concomitant]

REACTIONS (3)
  - GRANULOCYTOPENIA [None]
  - LEUKOPENIA [None]
  - PLATELET COUNT DECREASED [None]
